FAERS Safety Report 24902993 (Version 1)
Quarter: 2025Q1

REPORT INFORMATION
  Report Type: Spontaneous
  Country: MX (occurrence: MX)
  Receive Date: 20250130
  Receipt Date: 20250130
  Transmission Date: 20250408
  Serious: Yes (Other)
  Sender: ROCHE
  Company Number: MX-ROCHE-10000191207

PATIENT
  Age: 41 Year
  Sex: Female
  Weight: 62 kg

DRUGS (2)
  1. OCREVUS [Suspect]
     Active Substance: OCRELIZUMAB
     Indication: Multiple sclerosis
     Route: 040
     Dates: start: 2023
  2. MELATONIN [Concomitant]
     Active Substance: MELATONIN
     Indication: Insomnia

REACTIONS (4)
  - Memory impairment [Not Recovered/Not Resolved]
  - Affect lability [Not Recovered/Not Resolved]
  - Influenza [Recovering/Resolving]
  - Insomnia [Recovering/Resolving]

NARRATIVE: CASE EVENT DATE: 20240401
